FAERS Safety Report 7782941-0 (Version None)
Quarter: 2011Q3

REPORT INFORMATION
  Report Type: 
  Country: None (occurrence: None)
  Receive Date: 20110928
  Receipt Date: 20110919
  Transmission Date: 20111222
  Serious: Yes (Hospitalization)
  Sender: FDA-Public Use
  Company Number: CA-JNJFOC-20110908665

PATIENT
  Sex: Female
  Weight: 53 kg

DRUGS (5)
  1. REMICADE [Suspect]
     Dosage: 13TH INFUSION
     Route: 042
     Dates: start: 20110808
  2. REMICADE [Suspect]
     Dosage: 14TH INFUSION
     Route: 042
     Dates: start: 20110919
  3. TECTA [Concomitant]
  4. REMICADE [Suspect]
     Indication: CROHN'S DISEASE
     Route: 042
     Dates: start: 20100218
  5. BIRTH CONTROL PILLS [Concomitant]

REACTIONS (1)
  - FISTULA [None]
